FAERS Safety Report 10365109 (Version 1)
Quarter: 2014Q3

REPORT INFORMATION
  Report Type: Spontaneous
  Country: US (occurrence: None)
  Receive Date: 20140805
  Receipt Date: 20140805
  Transmission Date: 20150326
  Serious: Yes (Other)
  Sender: FDA-Public Use
  Company Number: None

PATIENT
  Age: 86 Year
  Sex: Female

DRUGS (1)
  1. FORTEO [Suspect]
     Active Substance: TERIPARATIDE
     Dosage: 20 MCG QD SUBCUTANEOUS
     Route: 058
     Dates: start: 20140508, end: 20140715

REACTIONS (6)
  - Nasopharyngitis [None]
  - Dysphagia [None]
  - Multiple allergies [None]
  - Cough [None]
  - Confusional state [None]
  - Influenza [None]

NARRATIVE: CASE EVENT DATE: 20140715
